FAERS Safety Report 8984677 (Version 3)
Quarter: 2014Q3

REPORT INFORMATION
  Report Type: Report from Study
  Country: NL (occurrence: NL)
  Receive Date: 20121226
  Receipt Date: 20140715
  Transmission Date: 20150326
  Serious: Yes (Death, Hospitalization)
  Sender: FDA-Public Use
  Company Number: PHHY2012NL119413

PATIENT
  Sex: Male

DRUGS (11)
  1. ZOMETA [Suspect]
     Active Substance: ZOLEDRONIC ACID
     Indication: PROSTATE CANCER METASTATIC
     Dosage: 4 MG/100ML, ONCE IN 21 DAYS
     Route: 042
  2. ZOMETA [Suspect]
     Active Substance: ZOLEDRONIC ACID
     Dosage: 4 MG/100ML, ONCE IN 21 DAYS
     Route: 042
     Dates: start: 20121205
  3. ZOMETA [Suspect]
     Active Substance: ZOLEDRONIC ACID
     Dosage: 4 MG/100ML, ONCE IN 21 DAYS
     Route: 042
     Dates: start: 20121224
  4. OXAZEPAM. [Concomitant]
     Active Substance: OXAZEPAM
     Dosage: 10 MG, PER DAY
  5. MORPHINE [Concomitant]
     Active Substance: MORPHINE
     Dosage: 4 MG/H, (4 MG PER HOUR)
     Route: 058
  6. ZOMETA [Suspect]
     Active Substance: ZOLEDRONIC ACID
     Dosage: 4 MG/100ML, ONCE IN 21 DAYS
     Route: 042
     Dates: start: 20120330
  7. PRIMPERAN [Concomitant]
     Active Substance: METOCLOPRAMIDE HYDROCHLORIDE
     Dosage: 10 MG, IF NECESSARY
  8. PREDNISONE. [Concomitant]
     Active Substance: PREDNISONE
     Dosage: 10 MG, PER DAY
  9. PARACETAMOL [Concomitant]
     Active Substance: ACETAMINOPHEN
     Dosage: 3 DF, DAILY
  10. MOVICOLON [Concomitant]
     Active Substance: POLYETHYLENE GLYCOL 3350\POTASSIUM CHLORIDE\SODIUM BICARBONATE\SODIUM CHLORIDE
     Dosage: IF NECESSARY 1 SACHET
  11. BUMETANIDE. [Concomitant]
     Active Substance: BUMETANIDE
     Dosage: 1 MG, 1DD

REACTIONS (3)
  - Death [Fatal]
  - Metastases to liver [Unknown]
  - Pulmonary embolism [Recovering/Resolving]

NARRATIVE: CASE EVENT DATE: 20121222
